FAERS Safety Report 7964713-7 (Version None)
Quarter: 2011Q4

REPORT INFORMATION
  Report Type: 
  Country: None (occurrence: None)
  Receive Date: 20111208
  Receipt Date: 20111130
  Transmission Date: 20120403
  Serious: Yes (Hospitalization)
  Sender: FDA-Public Use
  Company Number: US-SANOFI-AVENTIS-2011SA079455

PATIENT
  Age: 63 Year
  Sex: Female

DRUGS (3)
  1. LANTUS [Suspect]
     Dosage: 22-25UNITS
     Route: 058
     Dates: start: 20100101
  2. NOVOLOG [Concomitant]
  3. OPTICLICK [Suspect]
     Dates: start: 20100101

REACTIONS (3)
  - PNEUMONIA [None]
  - BLOOD GLUCOSE INCREASED [None]
  - INJECTION SITE HAEMATOMA [None]
